FAERS Safety Report 6921714-5 (Version None)
Quarter: 2010Q3

REPORT INFORMATION
  Report Type: 
  Country: None (occurrence: None)
  Receive Date: 20100812
  Receipt Date: 20100809
  Transmission Date: 20110219
  Serious: Yes (Hospitalization)
  Sender: FDA-Public Use
  Company Number: US-GILEAD-2010-0030936

PATIENT
  Sex: Female

DRUGS (13)
  1. LETAIRIS [Suspect]
     Indication: PULMONARY ARTERIAL HYPERTENSION
     Route: 048
     Dates: start: 20100701
  2. REVATIO [Concomitant]
  3. PREDNISONE TAB [Concomitant]
  4. METHOTREXATE [Concomitant]
  5. GABAPENTIN [Concomitant]
  6. METOCLOPRAM [Concomitant]
  7. FOLIC ACID [Concomitant]
  8. NEXIUM [Concomitant]
  9. VITAMIN D [Concomitant]
  10. VITAMIN D3 [Concomitant]
  11. ASPIRIN [Concomitant]
  12. COLACE [Concomitant]
  13. AMITIZA [Concomitant]

REACTIONS (2)
  - FATIGUE [None]
  - GASTROINTESTINAL DISORDER [None]
